FAERS Safety Report 6990366-0 (Version None)
Quarter: 2010Q3

REPORT INFORMATION
  Report Type: 
  Country: None (occurrence: None)
  Receive Date: 20100916
  Receipt Date: 20100616
  Transmission Date: 20110219
  Serious: Yes (Other)
  Sender: FDA-Public Use
  Company Number: US-PFIZER INC-2010076006

PATIENT
  Sex: Female
  Weight: 90.703 kg

DRUGS (4)
  1. LYRICA [Suspect]
     Indication: NEUROPATHY PERIPHERAL
     Dosage: UNK, 2X/DAY
     Route: 048
     Dates: end: 20100615
  2. LORCET-HD [Concomitant]
     Dosage: UNK
  3. LEXAPRO [Concomitant]
     Dosage: UNK
  4. MORPHINE [Concomitant]
     Dosage: UNK

REACTIONS (3)
  - GAIT DISTURBANCE [None]
  - PAIN [None]
  - WITHDRAWAL SYNDROME [None]
